FAERS Safety Report 9185989 (Version 2)
Quarter: 2013Q3

REPORT INFORMATION
  Report Type: Spontaneous
  Country: US (occurrence: None)
  Receive Date: 20120628
  Receipt Date: 20130724
  Transmission Date: 20140515
  Serious: Yes (Disabling)
  Sender: FDA-Public Use
  Company Number: PHEH2012US005236

PATIENT
  Age: 70 Year
  Sex: Female
  Weight: 53 kg

DRUGS (4)
  1. RECLAST [Suspect]
     Indication: OSTEOPOROSIS
     Dates: start: 20120210
  2. PROZAC (FLUOXETINE HYDROCHLORIDE) [Concomitant]
  3. ZOCOR (SIMVASTATIN) [Concomitant]
  4. CALCIUM W/VITAMIN D NOS (CALCIUM, VITAMIN D NOS) [Concomitant]

REACTIONS (4)
  - Back pain [None]
  - Musculoskeletal stiffness [None]
  - Headache [None]
  - Movement disorder [None]
